FAERS Safety Report 10008156 (Version 1)
Quarter: 2014Q1

REPORT INFORMATION
  Report Type: Spontaneous
  Country: US (occurrence: None)
  Receive Date: 20140311
  Receipt Date: 20140311
  Transmission Date: 20141002
  Serious: Yes (Hospitalization)
  Sender: FDA-Public Use
  Company Number: FK201400742

PATIENT
  Age: 44 Year
  Sex: Female

DRUGS (2)
  1. DEXAMETHASONE INJECTION (MANUFACTURER UNKNOWN) (DEXAMETHASONE SODIUM PHOSPHATE ) (DEXAMETHASONE SODIUM PHOSPHATE) [Suspect]
     Indication: AMYLOIDOSIS
     Dosage: DAYS 1, 8 AND 15 OF CYCLE ONE
  2. BORTEZOMIB (BORTEZOMIB) [Suspect]
     Indication: AMYLOIDOSIS
     Dosage: DAY 1, 8 AND 15 OF CYCLE 1

REACTIONS (3)
  - Fluid overload [None]
  - Syncope [None]
  - Neuropathy peripheral [None]
